FAERS Safety Report 8006740-X (Version None)
Quarter: 2011Q4

REPORT INFORMATION
  Report Type: 
  Country: None (occurrence: None)
  Receive Date: 20111227
  Receipt Date: 20111216
  Transmission Date: 20120403
  Serious: Yes (Hospitalization)
  Sender: FDA-Public Use
  Company Number: US-BAYER-2011-090608

PATIENT
  Age: 15 Year
  Sex: Female
  Weight: 54.422 kg

DRUGS (7)
  1. STRALTERA [Concomitant]
     Indication: ANXIETY
     Dosage: UNK
     Dates: start: 20020101, end: 20090101
  2. STRALTERA [Concomitant]
     Indication: ATTENTION DEFICIT/HYPERACTIVITY DISORDER
  3. YAZ [Suspect]
  4. YAZ [Suspect]
     Indication: MENSTRUATION IRREGULAR
  5. IBUPROFEN (ADVIL) [Concomitant]
     Indication: PAIN
     Dosage: UNK
     Dates: start: 20090101
  6. YAZ [Suspect]
     Indication: PREMENSTRUAL SYNDROME
     Dosage: UNK
     Dates: start: 20080901
  7. YAZ [Suspect]
     Indication: OVARIAN CYST

REACTIONS (5)
  - CHOLELITHIASIS [None]
  - LEUKOCYTOSIS [None]
  - CHOLECYSTITIS ACUTE [None]
  - NAUSEA [None]
  - ABDOMINAL PAIN UPPER [None]
